FAERS Safety Report 8154755-3 (Version None)
Quarter: 2012Q1

REPORT INFORMATION
  Report Type: 
  Country: None (occurrence: None)
  Receive Date: 20120221
  Receipt Date: 20120207
  Transmission Date: 20120608
  Serious: Yes (Other)
  Sender: FDA-Public Use
  Company Number: PHHY2012PL012706

PATIENT
  Age: 32 Year
  Sex: Female

DRUGS (3)
  1. MYFORTIC [Concomitant]
     Indication: RENAL TRANSPLANT
     Dosage: UNK UKN, UNK
  2. CYCLOSPORINE [Suspect]
     Indication: RENAL TRANSPLANT
     Dosage: UNK UKN, UNK
  3. ANTIVIRALS [Concomitant]

REACTIONS (1)
  - FOCAL SEGMENTAL GLOMERULOSCLEROSIS [None]
